FAERS Safety Report 25741364 (Version 1)
Quarter: 2025Q3

REPORT INFORMATION
  Report Type: Spontaneous
  Country: US (occurrence: US)
  Receive Date: 20250829
  Receipt Date: 20250829
  Transmission Date: 20251021
  Serious: Yes (Hospitalization)
  Sender: MALLINCKRODT
  Company Number: US-MALLINCKRODT-MNK202505075

PATIENT
  Age: 63 Year
  Sex: Male

DRUGS (5)
  1. CORTICOTROPIN [Suspect]
     Active Substance: CORTICOTROPIN
     Indication: Pulmonary sarcoidosis
     Route: 058
     Dates: start: 202410
  2. CORTICOTROPIN [Suspect]
     Active Substance: CORTICOTROPIN
     Indication: Sarcoidosis
  3. TYMLOS [Concomitant]
     Active Substance: ABALOPARATIDE
  4. NUCALA [Concomitant]
     Active Substance: MEPOLIZUMAB
  5. OPSUMIT [Concomitant]
     Active Substance: MACITENTAN

REACTIONS (1)
  - Lung transplant [Unknown]

NARRATIVE: CASE EVENT DATE: 20250723
